FAERS Safety Report 25587459 (Version 1)
Quarter: 2025Q3

REPORT INFORMATION
  Report Type: Spontaneous
  Country: EU (occurrence: EU)
  Receive Date: 20250721
  Receipt Date: 20250721
  Transmission Date: 20251021
  Serious: Yes (Death)
  Sender: ReacX Pharmaceuticals
  Company Number: EU-REACX PHARMACEUTICALS-2025RCX00078

PATIENT
  Age: 42 Year
  Sex: Female

DRUGS (3)
  1. BUPRENORPHINE [Suspect]
     Active Substance: BUPRENORPHINE
     Indication: Drug use disorder
     Route: 042
  2. AMPHETAMINE [Suspect]
     Active Substance: AMPHETAMINE
     Dosage: UNK, 1X/MONTH
  3. DIAZEPAM [Suspect]
     Active Substance: DIAZEPAM
     Dosage: UNK, 1X/DAY

REACTIONS (1)
  - Accidental poisoning [Fatal]
